FAERS Safety Report 19902170 (Version 2)
Quarter: 2021Q4

REPORT INFORMATION
  Report Type: Spontaneous
  Country: US (occurrence: US)
  Receive Date: 20210930
  Receipt Date: 20211105
  Transmission Date: 20220304
  Serious: Yes (Death, Life-Threatening, Hospitalization, Other)
  Sender: FDA-Public Use
  Company Number: US-ORGANON-O2109USA001268

PATIENT
  Age: 22 Year
  Sex: Female

DRUGS (1)
  1. CELESTONE SOLUSPAN [Suspect]
     Active Substance: BETAMETHASONE ACETATE\BETAMETHASONE SODIUM PHOSPHATE
     Indication: Maternal therapy to enhance foetal lung maturity
     Dosage: UNK

REACTIONS (2)
  - Coccidioidomycosis [Fatal]
  - Maternal exposure during pregnancy [Recovered/Resolved]
